FAERS Safety Report 11392868 (Version 1)
Quarter: 2015Q3

REPORT INFORMATION
  Report Type: Spontaneous
  Country: US (occurrence: US)
  Receive Date: 20150818
  Receipt Date: 20150818
  Transmission Date: 20151125
  Serious: No
  Sender: FDA-Public Use
  Company Number: US-GE HEALTHCARE MEDICAL DIAGNOSTICS-MYVW-PR-1506S-0044

PATIENT

DRUGS (2)
  1. MYOVIEW [Suspect]
     Active Substance: TECHNETIUM TC-99M TETROFOSMIN\TETROFOSMIN
     Indication: DIAGNOSTIC PROCEDURE
  2. MYOVIEW [Suspect]
     Active Substance: TECHNETIUM TC-99M TETROFOSMIN\TETROFOSMIN
     Indication: PRODUCT USED FOR UNKNOWN INDICATION
     Dosage: DOSE NOT REPORTED
     Dates: start: 20150604, end: 20150604

REACTIONS (2)
  - No adverse event [None]
  - Radioisotope scan abnormal [None]

NARRATIVE: CASE EVENT DATE: 20150604
